FAERS Safety Report 17294231 (Version 1)
Quarter: 2020Q1

REPORT INFORMATION
  Report Type: Spontaneous
  Country: US (occurrence: US)
  Receive Date: 20200121
  Receipt Date: 20200121
  Transmission Date: 20200409
  Serious: No
  Sender: FDA-Public Use
  Company Number: US-SA-2020SA011467

PATIENT
  Sex: Female

DRUGS (1)
  1. DUPIXENT [Suspect]
     Active Substance: DUPILUMAB
     Indication: LICHEN PLANUS
     Dosage: 300 MG
     Route: 058
     Dates: start: 201812

REACTIONS (2)
  - Product use in unapproved indication [Unknown]
  - Product use issue [Unknown]
